FAERS Safety Report 8311985-5 (Version None)
Quarter: 2012Q1

REPORT INFORMATION
  Report Type: 
  Country: None (occurrence: None)
  Receive Date: 20120315
  Receipt Date: 20110602
  Transmission Date: 20120608
  Serious: Yes (Other)
  Sender: FDA-Public Use
  Company Number: PHHY2011US40842

PATIENT
  Age: 40 Year
  Sex: Male
  Weight: 163.3 kg

DRUGS (5)
  1. NEXIUM [Concomitant]
  2. LOTREL [Concomitant]
  3. MAXZIDE [Concomitant]
  4. GILENYA [Suspect]
     Dosage: 0.5 MG, QD, ORAL
     Route: 048
  5. GILENYA [Suspect]
     Indication: MULTIPLE SCLEROSIS
     Dosage: 0.5 MG, QD, ORAL
     Route: 048
     Dates: start: 20110414, end: 20110514

REACTIONS (1)
  - VISION BLURRED [None]
